FAERS Safety Report 7413633-5 (Version None)
Quarter: 2011Q2

REPORT INFORMATION
  Report Type: 
  Country: None (occurrence: None)
  Receive Date: 20110413
  Receipt Date: 20110405
  Transmission Date: 20111010
  Serious: Yes (Other)
  Sender: FDA-Public Use
  Company Number: US-ALLERGAN-1104802US

PATIENT
  Age: 42 Year
  Sex: Female

DRUGS (1)
  1. RESTASIS [Suspect]
     Indication: DRY EYE
     Dosage: 1 DROP INSTILLED TWICE DAILY
     Route: 047
     Dates: start: 20110401, end: 20110402

REACTIONS (1)
  - SYNCOPE [None]
